FAERS Safety Report 23822972 (Version 1)
Quarter: 2024Q2

REPORT INFORMATION
  Report Type: Spontaneous
  Country: US (occurrence: US)
  Receive Date: 20240506
  Receipt Date: 20240506
  Transmission Date: 20240717
  Serious: Yes (Hospitalization, Other)
  Sender: FDA-Public Use
  Company Number: US-DRL-USA-LIT/USA/24/0006611

PATIENT
  Age: 16 Year
  Sex: Female

DRUGS (5)
  1. FLUOXETINE [Suspect]
     Active Substance: FLUOXETINE HYDROCHLORIDE
     Indication: Depression
     Dosage: 10 MG PO DAILY
  2. RISPERIDONE [Suspect]
     Active Substance: RISPERIDONE
     Indication: Affective disorder
     Dosage: 0.25 MG PO QHS [EVERY BEDTIME]
  3. RISPERIDONE [Suspect]
     Active Substance: RISPERIDONE
  4. LORAZEPAM [Suspect]
     Active Substance: LORAZEPAM
     Indication: Product use in unapproved indication
     Dosage: 1 MG PO TID
  5. LORAZEPAM [Suspect]
     Active Substance: LORAZEPAM
     Route: 030

REACTIONS (3)
  - Suicidal ideation [Unknown]
  - Drug ineffective [Unknown]
  - Suicide attempt [Unknown]
